FAERS Safety Report 18717061 (Version 1)
Quarter: 2021Q1

REPORT INFORMATION
  Report Type: Spontaneous
  Country: US (occurrence: US)
  Receive Date: 20210108
  Receipt Date: 20210108
  Transmission Date: 20210419
  Serious: Yes (Hospitalization)
  Sender: FDA-Public Use
  Company Number: US-MYLANLABS-2021M1000621

PATIENT
  Age: 83 Year
  Sex: Female

DRUGS (1)
  1. SODIUM TETRADECYL SULFATE [Suspect]
     Active Substance: SODIUM TETRADECYL SULFATE
     Indication: VARICOSE VEIN
     Dosage: UNK
     Route: 065

REACTIONS (1)
  - Anaphylactic reaction [Recovered/Resolved]
